FAERS Safety Report 12601578 (Version 1)
Quarter: 2016Q3

REPORT INFORMATION
  Report Type: Report from Study
  Country: US (occurrence: US)
  Receive Date: 20160728
  Receipt Date: 20160728
  Transmission Date: 20161109
  Serious: Yes (Other)
  Sender: FDA-Public Use
  Company Number: PHEH2016US018585

PATIENT
  Sex: Female

DRUGS (1)
  1. GILENYA [Suspect]
     Active Substance: FINGOLIMOD HYDROCHLORIDE
     Indication: PRODUCT USED FOR UNKNOWN INDICATION
     Dosage: UNK
     Route: 065
     Dates: start: 20150615

REACTIONS (6)
  - Injury [Recovering/Resolving]
  - Gait disturbance [Unknown]
  - Fall [Unknown]
  - Concomitant disease aggravated [Unknown]
  - Memory impairment [Unknown]
  - Tremor [Unknown]
